FAERS Safety Report 17477365 (Version 6)
Quarter: 2021Q1

REPORT INFORMATION
  Report Type: Report from Study
  Country: CA (occurrence: CA)
  Receive Date: 20200228
  Receipt Date: 20210303
  Transmission Date: 20210419
  Serious: Yes (Hospitalization, Other)
  Sender: FDA-Public Use
  Company Number: CA-JNJFOC-20191203019

PATIENT
  Age: 48 Year
  Sex: Female
  Weight: 103.6 kg

DRUGS (4)
  1. STELARA [Suspect]
     Active Substance: USTEKINUMAB
     Route: 058
  2. STELARA [Suspect]
     Active Substance: USTEKINUMAB
     Route: 058
  3. STELARA [Suspect]
     Active Substance: USTEKINUMAB
     Route: 058
  4. STELARA [Suspect]
     Active Substance: USTEKINUMAB
     Indication: CROHN^S DISEASE
     Route: 058
     Dates: start: 20190612

REACTIONS (7)
  - Diabetes mellitus [Not Recovered/Not Resolved]
  - Dysphagia [Unknown]
  - Hepatic steatosis [Unknown]
  - Hypoaesthesia [Not Recovered/Not Resolved]
  - Lipoma [Not Recovered/Not Resolved]
  - Vomiting [Recovered/Resolved]
  - Therapeutic product effect decreased [Unknown]

NARRATIVE: CASE EVENT DATE: 20191005
